FAERS Safety Report 11673414 (Version 1)
Quarter: 2015Q4

REPORT INFORMATION
  Report Type: Spontaneous
  Country: US (occurrence: US)
  Receive Date: 20151027
  Receipt Date: 20151027
  Transmission Date: 20160304
  Serious: No
  Sender: FDA-Public Use
  Company Number: US-ELI_LILLY_AND_COMPANY-US201007004578

PATIENT
  Age: 55 Year
  Sex: Male

DRUGS (1)
  1. FORTEO [Suspect]
     Active Substance: TERIPARATIDE
     Indication: OSTEOPOROSIS
     Dosage: 20 UG, DAILY (1/D)
     Dates: start: 20100626

REACTIONS (12)
  - Pyrexia [Unknown]
  - Arthralgia [Not Recovered/Not Resolved]
  - Cold sweat [Unknown]
  - Malaise [Unknown]
  - Musculoskeletal discomfort [Unknown]
  - Flushing [Unknown]
  - Nausea [Recovering/Resolving]
  - Paraesthesia [Unknown]
  - Injection site haemorrhage [Unknown]
  - Asthenia [Unknown]
  - Chills [Unknown]
  - Headache [Not Recovered/Not Resolved]

NARRATIVE: CASE EVENT DATE: 20100626
